FAERS Safety Report 13995711 (Version 3)
Quarter: 2017Q4

REPORT INFORMATION
  Report Type: Spontaneous
  Country: US (occurrence: US)
  Receive Date: 20170921
  Receipt Date: 20171020
  Transmission Date: 20180321
  Serious: Yes (Life-Threatening, Hospitalization, Other)
  Sender: FDA-Public Use
  Company Number: US-PFIZER INC-2017407434

PATIENT
  Age: 42 Year
  Sex: Female
  Weight: 97.51 kg

DRUGS (3)
  1. SILDENAFIL CITRATE. [Suspect]
     Active Substance: SILDENAFIL CITRATE
     Indication: PULMONARY HYPERTENSION
     Dosage: 40 MG, UNK
  2. SILDENAFIL CITRATE. [Suspect]
     Active Substance: SILDENAFIL CITRATE
     Indication: CARDIAC FAILURE ACUTE
     Dosage: 80 MG, 3X/DAY
     Route: 048
  3. REVATIO [Suspect]
     Active Substance: SILDENAFIL CITRATE
     Dosage: UNK

REACTIONS (7)
  - Pulmonary vascular resistance abnormality [Recovering/Resolving]
  - Cardiac failure acute [Recovering/Resolving]
  - Acute pulmonary oedema [Recovering/Resolving]
  - Cough [Unknown]
  - Emotional distress [Unknown]
  - Dyspnoea [Unknown]
  - Product use issue [Unknown]
